FAERS Safety Report 20323393 (Version 1)
Quarter: 2022Q1

REPORT INFORMATION
  Report Type: Spontaneous
  Country: US (occurrence: US)
  Receive Date: 20220111
  Receipt Date: 20220111
  Transmission Date: 20220424
  Serious: No
  Sender: FDA-Public Use
  Company Number: US-NOVOPROD-841557

PATIENT
  Age: 91 Year
  Sex: Male

DRUGS (1)
  1. RYBELSUS [Suspect]
     Active Substance: SEMAGLUTIDE
     Indication: Type 2 diabetes mellitus
     Dosage: 7 MG
     Route: 048

REACTIONS (5)
  - Throat irritation [Unknown]
  - Lacrimation increased [Unknown]
  - Sneezing [Unknown]
  - Foreign body in throat [Recovered/Resolved]
  - Product use complaint [Unknown]
